FAERS Safety Report 18427224 (Version 1)
Quarter: 2020Q4

REPORT INFORMATION
  Report Type: Spontaneous
  Country: HK (occurrence: HK)
  Receive Date: 20201026
  Receipt Date: 20201026
  Transmission Date: 20210114
  Serious: Yes (Hospitalization, Other)
  Sender: FDA-Public Use
  Company Number: HK-BAYER-2020-175229

PATIENT
  Sex: Female

DRUGS (4)
  1. VISANNE [Interacting]
     Active Substance: DIENOGEST
     Indication: ENDOMETRIOSIS
     Dosage: UNK
     Route: 048
     Dates: start: 2020
  2. VISANNE [Interacting]
     Active Substance: DIENOGEST
     Indication: ENDOMETRIOSIS
     Dosage: 1 DF, QD
     Route: 048
     Dates: start: 201408, end: 2020
  3. DILTIAZEM HYDROCHLORIDE. [Interacting]
     Active Substance: DILTIAZEM HYDROCHLORIDE
     Dosage: 30 MG
     Route: 048
  4. YAZ [Suspect]
     Active Substance: DROSPIRENONE\ETHINYL ESTRADIOL
     Indication: ENDOMETRIOSIS
     Dosage: UNK
     Dates: start: 2020, end: 2020

REACTIONS (6)
  - Supraventricular tachycardia [Recovered/Resolved]
  - Off label use [None]
  - Heart rate increased [Recovered/Resolved]
  - Drug ineffective for unapproved indication [None]
  - Supraventricular tachycardia [Recovered/Resolved]
  - Drug interaction [Recovered/Resolved]

NARRATIVE: CASE EVENT DATE: 2020
